FAERS Safety Report 21824973 (Version 1)
Quarter: 2023Q1

REPORT INFORMATION
  Report Type: Spontaneous
  Country: US (occurrence: US)
  Receive Date: 20230105
  Receipt Date: 20230105
  Transmission Date: 20230418
  Serious: No
  Sender: FDA-Public Use
  Company Number: US-TEVA-2022-US-2842457

PATIENT
  Sex: Female

DRUGS (5)
  1. COPAXONE [Suspect]
     Active Substance: GLATIRAMER ACETATE
     Indication: Multiple sclerosis
     Dosage: FORM STRENGTH AND ROUTE OF ADMIN: UNKNOWN
     Route: 065
  2. TIZANIDINE [Concomitant]
     Active Substance: TIZANIDINE
     Indication: Product used for unknown indication
  3. MODAFINIL [Concomitant]
     Active Substance: MODAFINIL
     Indication: Product used for unknown indication
  4. Cranberry Chews [Concomitant]
     Indication: Product used for unknown indication
  5. Melatonin gummies [Concomitant]
     Indication: Product used for unknown indication

REACTIONS (2)
  - Adverse drug reaction [Unknown]
  - Influenza [Unknown]
